FAERS Safety Report 16712952 (Version 1)
Quarter: 2019Q3

REPORT INFORMATION
  Report Type: Spontaneous
  Country: PL (occurrence: PL)
  Receive Date: 20190817
  Receipt Date: 20190817
  Transmission Date: 20191004
  Serious: Yes (Other)
  Sender: FDA-Public Use
  Company Number: PL-AUROBINDO-AUR-APL-2019-053866

PATIENT

DRUGS (8)
  1. LEVETIRACETAM. [Suspect]
     Active Substance: LEVETIRACETAM
     Indication: FRONTAL LOBE EPILEPSY
     Dosage: USED DURING THE ADMISSION BEFORE LIDOCAINE INFUSION
     Route: 065
  2. VALPROIC ACID. [Suspect]
     Active Substance: VALPROIC ACID
     Indication: FRONTAL LOBE EPILEPSY
     Dosage: USED DURING THE ADMISSION BEFORE LIDOCAINE INFUSION
     Route: 042
  3. PHENYTOIN. [Concomitant]
     Active Substance: PHENYTOIN
     Indication: FRONTAL LOBE EPILEPSY
     Dosage: SIMULTANEOUSLY WITH LIDOCAINE INFUSION
     Route: 065
  4. CLONAZEPAM. [Suspect]
     Active Substance: CLONAZEPAM
     Indication: FRONTAL LOBE EPILEPSY
     Dosage: USED DURING THE ADMISSION BEFORE LIDOCAINE INFUSION
     Route: 065
  5. CARBAMAZEPINE. [Concomitant]
     Active Substance: CARBAMAZEPINE
     Indication: FRONTAL LOBE EPILEPSY
     Dosage: SIMULTANEOUSLY WITH LIDOCAINE INFUSION
     Route: 048
  6. DIAZEPAM. [Suspect]
     Active Substance: DIAZEPAM
     Indication: FRONTAL LOBE EPILEPSY
     Dosage: UNK
     Route: 042
  7. TOPIRAMATE. [Suspect]
     Active Substance: TOPIRAMATE
     Indication: FRONTAL LOBE EPILEPSY
     Dosage: USED DURING THE ADMISSION BEFORE LIDOCAINE INFUSION
     Route: 065
  8. ACETAZOLAMIDE. [Concomitant]
     Active Substance: ACETAZOLAMIDE
     Indication: FRONTAL LOBE EPILEPSY
     Dosage: USED SIMULTANEOUSLY WITH LIDOCAINE INFUSION
     Route: 065

REACTIONS (1)
  - Drug resistance [Unknown]
